FAERS Safety Report 12771970 (Version 1)
Quarter: 2016Q3

REPORT INFORMATION
  Report Type: Spontaneous
  Country: IN (occurrence: IN)
  Receive Date: 20160922
  Receipt Date: 20160922
  Transmission Date: 20161109
  Serious: Yes (Other)
  Sender: FDA-Public Use
  Company Number: IN-PFIZER INC-2016438575

PATIENT
  Age: 51 Year
  Sex: Female

DRUGS (1)
  1. AROMASIN [Suspect]
     Active Substance: EXEMESTANE
     Indication: BREAST CANCER
     Dosage: 25 MG, 1X/DAY
     Route: 048
     Dates: start: 20160406, end: 20160913

REACTIONS (5)
  - Weight decreased [Unknown]
  - Disease progression [Unknown]
  - Platelet count decreased [Unknown]
  - Breast cancer [Unknown]
  - Haemoglobin decreased [Unknown]
